FAERS Safety Report 8911230 (Version 1)
Quarter: 2012Q4

REPORT INFORMATION
  Report Type: 
  Country: US (occurrence: US)
  Receive Date: 20121116
  Receipt Date: 20121116
  Transmission Date: 20130627
  Serious: No
  Sender: FDA-Public Use
  Company Number: US-GLAXOSMITHKLINE-A0992638A

PATIENT
  Age: 82 Year
  Sex: Male

DRUGS (4)
  1. VOTRIENT [Suspect]
     Indication: PRODUCT USED FOR UNKNOWN INDICATION
     Dosage: 800MG Per day
     Dates: start: 20120703
  2. SIMVASTATIN [Concomitant]
  3. PANTOPRAZOLE [Concomitant]
  4. NIFEDICAL XL [Concomitant]

REACTIONS (2)
  - Vision blurred [Unknown]
  - Decreased appetite [Unknown]
